FAERS Safety Report 25966441 (Version 3)
Quarter: 2025Q4

REPORT INFORMATION
  Report Type: Spontaneous
  Country: US (occurrence: US)
  Receive Date: 20251028
  Receipt Date: 20251204
  Transmission Date: 20260118
  Serious: No
  Sender: TOLMAR
  Company Number: US-Tolmar-TLM-2025-07815

PATIENT

DRUGS (3)
  1. ELIGARD [Suspect]
     Active Substance: LEUPROLIDE ACETATE
     Indication: Prostate cancer
     Dosage: DOSE NOT ADMINISTERED?GTIN: 00362935227106?SN: 2301098704399?SYRINGE A: LOT NUMBER: 15305BUS EXP: 9/
  2. ELIGARD [Suspect]
     Active Substance: LEUPROLIDE ACETATE
     Dosage: REPLACEMENT DOSE
  3. DEVICE [Suspect]
     Active Substance: DEVICE
     Indication: Prostate cancer
     Dosage: GTIN: 00362935227106?SN: 2301098704399?SYRINGE A: LOT NUMBER: 15305BUS EXP: 9/2026?SYRINGE B: LOT NU

REACTIONS (2)
  - Intercepted product preparation error [Unknown]
  - Device leakage [Unknown]
